FAERS Safety Report 7018116-2 (Version None)
Quarter: 2010Q3

REPORT INFORMATION
  Report Type: 
  Country: None (occurrence: None)
  Receive Date: 20100927
  Receipt Date: 20100927
  Transmission Date: 20110219
  Serious: Yes (Other)
  Sender: FDA-Public Use
  Company Number: None

PATIENT
  Age: 21 Year
  Sex: Female
  Weight: 92.5338 kg

DRUGS (1)
  1. FLUCONAZOLE [Suspect]
     Indication: FUNGAL INFECTION
     Dosage: 1 150 MG PILL TAKEN ONCE PO
     Route: 048
     Dates: start: 20100924, end: 20100924

REACTIONS (6)
  - BURNING SENSATION [None]
  - GROIN PAIN [None]
  - RASH [None]
  - SINUSITIS [None]
  - SKIN EXFOLIATION [None]
  - SKIN IRRITATION [None]
